FAERS Safety Report 18232152 (Version 1)
Quarter: 2020Q3

REPORT INFORMATION
  Report Type: Spontaneous
  Country: FR (occurrence: FR)
  Receive Date: 20200904
  Receipt Date: 20200904
  Transmission Date: 20201103
  Serious: Yes (Other)
  Sender: FDA-Public Use
  Company Number: FR-CADILA HEALTHCARE LIMITED-FR-ZYDUS-055136

PATIENT

DRUGS (2)
  1. OLANZAPINE. [Suspect]
     Active Substance: OLANZAPINE
     Indication: OBSESSIVE-COMPULSIVE DISORDER
     Dosage: 7.5 MILLIGRAM
     Route: 065
  2. CLOMIPRAMINE [Suspect]
     Active Substance: CLOMIPRAMINE
     Indication: OBSESSIVE-COMPULSIVE DISORDER
     Dosage: 150 MILLIGRAM
     Route: 065

REACTIONS (8)
  - Drug-disease interaction [Recovering/Resolving]
  - Sleep disorder [Recovering/Resolving]
  - Hallucination, visual [Recovering/Resolving]
  - Orthostatic hypotension [Recovering/Resolving]
  - Confusional state [Recovering/Resolving]
  - Extrapyramidal disorder [Recovering/Resolving]
  - Dyspraxia [Recovering/Resolving]
  - Dysphagia [Recovering/Resolving]
